FAERS Safety Report 25957524 (Version 1)
Quarter: 2025Q4

REPORT INFORMATION
  Report Type: Spontaneous
  Country: BR (occurrence: BR)
  Receive Date: 20251024
  Receipt Date: 20251024
  Transmission Date: 20260118
  Serious: Yes (Other)
  Sender: INCYTE
  Company Number: BR-GRUPO BIOTOSCANA S.A.-2025-10-BR-01464

PATIENT
  Age: 101 Year

DRUGS (1)
  1. TAFASITAMAB [Suspect]
     Active Substance: TAFASITAMAB
     Indication: Diffuse large B-cell lymphoma
     Dosage: UNK, UNK

REACTIONS (8)
  - Arrhythmia [Recovered/Resolved]
  - Chest pain [Recovered/Resolved]
  - Acute pulmonary oedema [Recovered/Resolved]
  - Acute myocardial infarction [Recovered/Resolved]
  - Acute respiratory failure [Recovered/Resolved]
  - Tremor [Recovered/Resolved]
  - Acidosis [Recovered/Resolved]
  - Infusion related reaction [Recovered/Resolved]
